FAERS Safety Report 16388863 (Version 1)
Quarter: 2019Q2

REPORT INFORMATION
  Report Type: Spontaneous
  Country: CA (occurrence: CA)
  Receive Date: 20190604
  Receipt Date: 20190604
  Transmission Date: 20190711
  Serious: Yes (Hospitalization, Disabling, Other)
  Sender: FDA-Public Use
  Company Number: CA-PFIZER INC-2019233879

PATIENT
  Age: 71 Year
  Sex: Female

DRUGS (11)
  1. ASACOL [Concomitant]
     Active Substance: MESALAMINE
     Dosage: 800 MG, 2X/DAY
  2. GLICLAZIDE [Concomitant]
     Active Substance: GLICLAZIDE
     Dosage: 160 MG, 2X/DAY
     Route: 048
  3. ENDOCET [Concomitant]
     Active Substance: ACETAMINOPHEN\OXYCODONE HYDROCHLORIDE
     Dosage: UNK
  4. PREGABALIN. [Suspect]
     Active Substance: PREGABALIN
     Dosage: UNK
     Route: 048
  5. ATIVAN [Concomitant]
     Active Substance: LORAZEPAM
     Dosage: 1 MG, 3X/DAY
     Route: 058
  6. DICETEL [Concomitant]
     Active Substance: PINAVERIUM BROMIDE
     Dosage: 100 MG, 3X/DAY
     Route: 048
  7. METFORMIN [Concomitant]
     Active Substance: METFORMIN HYDROCHLORIDE
     Dosage: 500 MG, 2X/DAY
     Route: 048
  8. TUZEN [Concomitant]
     Dosage: 1 DF, 1X/DAY
     Route: 048
  9. HYDROXYZINE [Concomitant]
     Active Substance: HYDROXYZINE HYDROCHLORIDE
     Dosage: 50 MG, UNK
  10. LYRICA [Suspect]
     Active Substance: PREGABALIN
     Dosage: 75 MG, 2X/DAY
     Route: 065
  11. ATENOLOL. [Concomitant]
     Active Substance: ATENOLOL
     Dosage: 75 MG, 1X/DAY

REACTIONS (2)
  - Pharyngeal oedema [Recovered/Resolved]
  - Angioedema [Recovered/Resolved]
